FAERS Safety Report 23695019 (Version 1)
Quarter: 2024Q2

REPORT INFORMATION
  Report Type: Spontaneous
  Country: US (occurrence: US)
  Receive Date: 20240402
  Receipt Date: 20240402
  Transmission Date: 20240716
  Serious: No
  Sender: FDA-Public Use
  Company Number: US-BIOGEN-2022BI01177400

PATIENT
  Sex: Male

DRUGS (1)
  1. VUMERITY [Suspect]
     Active Substance: DIROXIMEL FUMARATE
     Indication: Multiple sclerosis
     Dosage: TAKE 2 CAPSULES?(462MG) BY MOUTH?TWICE DAILY.
     Route: 050
     Dates: start: 20220902

REACTIONS (2)
  - Memory impairment [Unknown]
  - Feeling hot [Not Recovered/Not Resolved]
